FAERS Safety Report 19284106 (Version 1)
Quarter: 2021Q2

REPORT INFORMATION
  Report Type: Other
  Country: TR (occurrence: TR)
  Receive Date: 20210521
  Receipt Date: 20210521
  Transmission Date: 20210717
  Serious: Yes (Death)
  Sender: FDA-Public Use
  Company Number: TR-ROCHE-2832725

PATIENT
  Age: 67 Year
  Sex: Male
  Weight: 82 kg

DRUGS (2)
  1. ATEZOLIZUMAB. [Suspect]
     Active Substance: ATEZOLIZUMAB
     Indication: HEPATOCELLULAR CARCINOMA
     Dosage: MOST RECENT DOSE PRIOR TO SAE ON 31/MAR/2021
     Route: 042
     Dates: start: 20210217
  2. BEVACIZUMAB. [Suspect]
     Active Substance: BEVACIZUMAB
     Indication: HEPATOCELLULAR CARCINOMA
     Dosage: MOST RECENT DOSE PRIOR TO SAE ON 31/MAR/2021
     Route: 042
     Dates: start: 20210217

REACTIONS (2)
  - Drug ineffective [Unknown]
  - Disease progression [Fatal]

NARRATIVE: CASE EVENT DATE: 20210414
